FAERS Safety Report 17318668 (Version 2)
Quarter: 2020Q1

REPORT INFORMATION
  Report Type: Report from Study
  Country: CA (occurrence: CA)
  Receive Date: 20200124
  Receipt Date: 20200130
  Transmission Date: 20200409
  Serious: Yes (Disabling, Other)
  Sender: FDA-Public Use
  Company Number: CA-NALPROPION PHARMACEUTICALS INC.-2020-009451

PATIENT

DRUGS (6)
  1. MELOXICAM. [Concomitant]
     Active Substance: MELOXICAM
     Indication: PAIN
     Dosage: DAILY
     Route: 048
  2. CONTRAVE [Suspect]
     Active Substance: BUPROPION HYDROCHLORIDE\NALTREXONE HYDROCHLORIDE
     Dosage: 29/NOV/2019 (APPROX) TO 05/DEC/2019 (APPROX) MORNING TWO TABLETS AND EVENING ONE TABLET
     Route: 048
     Dates: start: 201911, end: 201912
  3. CONTRAVE [Suspect]
     Active Substance: BUPROPION HYDROCHLORIDE\NALTREXONE HYDROCHLORIDE
     Dosage: 06/DEC/2019 (APPROX), MORNING TWO TABLETS AND EVENING TWO TABLET
     Route: 048
     Dates: start: 201912
  4. CONTRAVE [Suspect]
     Active Substance: BUPROPION HYDROCHLORIDE\NALTREXONE HYDROCHLORIDE
     Indication: WEIGHT CONTROL
     Dosage: 15/NOV/2019 (APPROX) TO 21/NOV/2019 (APPROX)
     Route: 048
     Dates: start: 201911, end: 201911
  5. CORTISONE [Concomitant]
     Active Substance: CORTISONE
     Indication: INFLAMMATION
     Dosage: 80 MG, DAILY
     Route: 048
  6. CONTRAVE [Suspect]
     Active Substance: BUPROPION HYDROCHLORIDE\NALTREXONE HYDROCHLORIDE
     Dosage: 22/NOV/2019 (APPROX) TO 28/NOV/2019 (APPROX)
     Route: 048
     Dates: start: 201911, end: 201911

REACTIONS (3)
  - Joint injury [Unknown]
  - Sciatica [Not Recovered/Not Resolved]
  - Gait inability [Unknown]
